FAERS Safety Report 9219652 (Version 3)
Quarter: 2013Q3

REPORT INFORMATION
  Report Type: Spontaneous
  Country: DE (occurrence: DE)
  Receive Date: 20130409
  Receipt Date: 20130821
  Transmission Date: 20140515
  Serious: Yes (Other)
  Sender: FDA-Public Use
  Company Number: DE-BRISTOL-MYERS SQUIBB COMPANY-18740894

PATIENT
  Age: 73 Year
  Sex: Male
  Weight: 88 kg

DRUGS (3)
  1. SPRYCEL (CML) TABS 100 MG [Suspect]
     Indication: CHRONIC MYELOID LEUKAEMIA
     Route: 048
     Dates: start: 201302, end: 201305
  2. CISPLATIN [Suspect]
     Dates: start: 20130403
  3. VINORELBINE [Suspect]
     Dates: start: 20130410

REACTIONS (3)
  - Lung adenocarcinoma [Unknown]
  - Pleural effusion [Recovering/Resolving]
  - Thrombocytopenia [Recovering/Resolving]
